FAERS Safety Report 7212396-6 (Version None)
Quarter: 2011Q1

REPORT INFORMATION
  Report Type: 
  Country: None (occurrence: None)
  Receive Date: 20110106
  Receipt Date: 20110103
  Transmission Date: 20110831
  Serious: Yes (Hospitalization)
  Sender: FDA-Public Use
  Company Number: US-AMGEN-USASP2011000246

PATIENT

DRUGS (1)
  1. ENBREL [Suspect]
     Indication: RHEUMATOID ARTHRITIS
     Dates: start: 20041011

REACTIONS (4)
  - BACK DISORDER [None]
  - DEVICE MALFUNCTION [None]
  - INJECTION SITE DISCOMFORT [None]
  - SCIATIC NERVE INJURY [None]
